FAERS Safety Report 11118684 (Version 1)
Quarter: 2015Q2

REPORT INFORMATION
  Report Type: Spontaneous
  Country: US (occurrence: US)
  Receive Date: 20150518
  Receipt Date: 20150518
  Transmission Date: 20150821
  Serious: No
  Sender: FDA-Public Use
  Company Number: US-MYLANLABS-2015M1007437

PATIENT
  Sex: Female
  Weight: 88.44 kg

DRUGS (3)
  1. TOPROL XL [Concomitant]
     Active Substance: METOPROLOL SUCCINATE
     Indication: BLOOD PRESSURE
     Dosage: UNK
  2. ITRACONAZOLE CAPSULES [Suspect]
     Active Substance: ITRACONAZOLE
     Indication: URTICARIA
     Dosage: 100 MG, BID
     Route: 048
     Dates: start: 20150302
  3. ITRACONAZOLE CAPSULES [Suspect]
     Active Substance: ITRACONAZOLE
     Indication: OFF LABEL USE

REACTIONS (2)
  - Skin warm [Not Recovered/Not Resolved]
  - Urticaria [Not Recovered/Not Resolved]

NARRATIVE: CASE EVENT DATE: 20150303
